FAERS Safety Report 6312593-8 (Version None)
Quarter: 2009Q3

REPORT INFORMATION
  Report Type: 
  Country: None (occurrence: None)
  Receive Date: 20090813
  Receipt Date: 20090803
  Transmission Date: 20100115
  Serious: Yes (Death)
  Sender: FDA-Public Use
  Company Number: 232619K08USA

PATIENT
  Age: 35 Year
  Sex: Male
  Weight: 76 kg

DRUGS (19)
  1. NOVANTRONE [Suspect]
     Indication: MULTIPLE SCLEROSIS
  2. REBIF [Suspect]
     Indication: MULTIPLE SCLEROSIS
     Dosage: 44 MCG, 3 IN 1 WEEKS, SUBCUTANEOUS
     Route: 058
     Dates: start: 20070207, end: 20080401
  3. VICODIN [Suspect]
     Dosage: AS REQUIRED
     Dates: start: 20070207, end: 20080401
  4. METHADONE HCL [Suspect]
     Dosage: 5 MG, 3 IN 1 DAYS
     Dates: start: 20080304, end: 20080401
  5. TRIAZOLAM [Suspect]
     Indication: SOMNOLENCE
     Dosage: 0.5 MG, 1 IN 1 DAYS, ORAL
     Route: 048
     Dates: start: 20070207, end: 20080401
  6. AMITRIPTYLINE HYDROCHLORIDE [Concomitant]
  7. CALCIUM 600 PLUS VITAMIN D (CALCIUM WITH VITAMIN D) [Concomitant]
  8. CEPHALEXIN [Concomitant]
  9. VALIUM [Concomitant]
  10. ENABLEX ER (DARIFENACIN) [Concomitant]
  11. GABAPENTIN [Concomitant]
  12. KEPPRA [Concomitant]
  13. LEXAPRO [Concomitant]
  14. LIDODERM [Concomitant]
  15. MULTIVITAMIN [Concomitant]
  16. POTASSIUM (POTASSIUM) [Concomitant]
  17. PREDNISONE TAB [Concomitant]
  18. TIZANIDINE HCL [Concomitant]
  19. VIAGRA [Concomitant]

REACTIONS (4)
  - DISEASE PROGRESSION [None]
  - EJECTION FRACTION DECREASED [None]
  - EPILEPSY [None]
  - MULTIPLE SCLEROSIS [None]
